FAERS Safety Report 6532175-2 (Version None)
Quarter: 2010Q1

REPORT INFORMATION
  Report Type: 
  Country: None (occurrence: None)
  Receive Date: 20100108
  Receipt Date: 20100105
  Transmission Date: 20100710
  Serious: Yes (Hospitalization)
  Sender: FDA-Public Use
  Company Number: DK-PFIZER INC-2009172407

PATIENT
  Sex: Male

DRUGS (1)
  1. CAVERJECT DUAL [Suspect]
     Indication: ERECTILE DYSFUNCTION
     Dosage: 3 UG, AS NEEDED
     Route: 017
     Dates: start: 20090105

REACTIONS (5)
  - CARDIAC OPERATION [None]
  - PAIN IN EXTREMITY [None]
  - PENILE PAIN [None]
  - PERINEAL PAIN [None]
  - SCROTAL PAIN [None]
